FAERS Safety Report 7743205-4 (Version None)
Quarter: 2011Q3

REPORT INFORMATION
  Report Type: 
  Country: None (occurrence: None)
  Receive Date: 20110912
  Receipt Date: 20110830
  Transmission Date: 20111222
  Serious: Yes (Death, Other)
  Sender: FDA-Public Use
  Company Number: CA-ELI_LILLY_AND_COMPANY-CA201108008871

PATIENT
  Sex: Male

DRUGS (30)
  1. CLOPIXOL DEPOT [Concomitant]
  2. TEGRETOL [Concomitant]
  3. QUETIAPINE [Concomitant]
  4. ZOPICLONE [Concomitant]
  5. FLUANXOL [Concomitant]
  6. VALPROIC ACID [Concomitant]
  7. CLOPIXOL ACUPHASE [Concomitant]
  8. TRAZODONE HCL [Concomitant]
  9. CHLORAL HYDRATE [Concomitant]
  10. ZYPREXA [Suspect]
     Dosage: 5 MG, BID
  11. ZYPREXA [Suspect]
     Dosage: 5 MG, QD
  12. LORAZEPAM [Concomitant]
  13. MODECATE [Concomitant]
  14. ZYPREXA [Suspect]
     Indication: AFFECTIVE DISORDER
     Dosage: 20 MG, EACH EVENING
  15. ZYPREXA [Suspect]
     Dosage: 7.5 MG, QD
  16. ZYPREXA [Suspect]
     Dosage: 2.5 MG, EACH EVENING
  17. ZYPREXA ZYDIS [Suspect]
     Indication: AFFECTIVE DISORDER
     Dosage: 5 MG, UNKNOWN
  18. ZYPREXA ZYDIS [Suspect]
     Dosage: 5 MG, TID
  19. ZYPREXA [Suspect]
     Dosage: 2.5 MG, BID
  20. FLURAZEPAM HYDROCHLORIDE [Concomitant]
  21. KEMADRIN [Concomitant]
  22. LITHIUM CARBONATE [Concomitant]
  23. ZYPREXA [Suspect]
     Dosage: 10 MG, QD
  24. ZYPREXA ZYDIS [Suspect]
     Dosage: 10 MG, UNKNOWN
  25. VALIUM [Concomitant]
  26. ZYPREXA ZYDIS [Suspect]
     Dosage: 5 MG, BID
  27. PHENYTOIN [Concomitant]
  28. HALDOL [Concomitant]
  29. CHLORPROMAZINE HCL [Concomitant]
  30. CLONAZEPAM [Concomitant]

REACTIONS (4)
  - DEATH [None]
  - DIABETES MELLITUS [None]
  - EPILEPSY [None]
  - HYPERGLYCAEMIA [None]
